FAERS Safety Report 9886122 (Version 1)
Quarter: 2014Q1

REPORT INFORMATION
  Report Type: Spontaneous
  Country: US (occurrence: US)
  Receive Date: 20140210
  Receipt Date: 20140210
  Transmission Date: 20141002
  Serious: No
  Sender: FDA-Public Use
  Company Number: US-ENDO PHARMACEUTICALS INC.-PHEN20130020

PATIENT
  Sex: Female

DRUGS (2)
  1. PHENTERMINE HCL TABLETS [Suspect]
     Indication: DECREASED APPETITE
     Dosage: UNKNOWN
     Route: 048
     Dates: start: 2013
  2. PHENTERMINE [Concomitant]
     Indication: DECREASED APPETITE
     Dosage: UNKNOWN
     Route: 048
     Dates: start: 2012, end: 2013

REACTIONS (2)
  - Drug ineffective [Unknown]
  - Drug ineffective for unapproved indication [Unknown]
